FAERS Safety Report 5340810-X (Version None)
Quarter: 2007Q2

REPORT INFORMATION
  Report Type: 
  Country: None (occurrence: None)
  Receive Date: 20070405
  Receipt Date: 20070125
  Transmission Date: 20071010
  Serious: Yes (Other)
  Sender: FDA-Public Use
  Company Number: US200701005074

PATIENT
  Age: 41 Year
  Sex: Male

DRUGS (3)
  1. CYMBALTA [Suspect]
     Dosage: 90 MG, DAILY (1/D)
     Dates: start: 20060101, end: 20070101
  2. KLONOPIN [Concomitant]
  3. NORCO [Concomitant]

REACTIONS (1)
  - GLAUCOMA [None]
